FAERS Safety Report 6548329-5 (Version None)
Quarter: 2010Q1

REPORT INFORMATION
  Report Type: 
  Country: None (occurrence: None)
  Receive Date: 20100124
  Receipt Date: 20090514
  Transmission Date: 20100710
  Serious: No
  Sender: FDA-Public Use
  Company Number: US-ALLERGAN-0906710US

PATIENT
  Age: 55 Year
  Sex: Female

DRUGS (6)
  1. RESTASIS [Suspect]
     Indication: DRY EYE
     Dosage: UNK, UNK
     Route: 047
     Dates: start: 20090513
  2. CLONAZEPAM [Concomitant]
     Dosage: 1 MG, TID
  3. LAMOTRIGINE [Concomitant]
     Dosage: 200 MG, QD
  4. TRAZODONE [Concomitant]
     Dosage: 100 MG, QD
  5. ACTOS [Concomitant]
  6. AMLODIPINE [Concomitant]
     Dosage: 20/10MG, QD

REACTIONS (2)
  - EYE DISORDER [None]
  - EYE SWELLING [None]
